FAERS Safety Report 14728333 (Version 2)
Quarter: 2019Q1

REPORT INFORMATION
  Report Type: Report from Study
  Country: UY (occurrence: UY)
  Receive Date: 20180406
  Receipt Date: 20190204
  Transmission Date: 20190417
  Serious: Yes (Other)
  Sender: FDA-Public Use
  Company Number: UY-BAYER-2018-061641

PATIENT
  Age: 22 Year
  Sex: Female

DRUGS (1)
  1. BETAFERON [Suspect]
     Active Substance: INTERFERON BETA-1B
     Indication: MULTIPLE SCLEROSIS
     Dosage: 0.5 MG, UNK
     Route: 058
     Dates: start: 201706, end: 20180215

REACTIONS (2)
  - Nephrotic syndrome [Recovering/Resolving]
  - Product use issue [None]

NARRATIVE: CASE EVENT DATE: 201711
